FAERS Safety Report 12741311 (Version 1)
Quarter: 2016Q3

REPORT INFORMATION
  Report Type: Report from Study
  Country: US (occurrence: US)
  Receive Date: 20160914
  Receipt Date: 20160914
  Transmission Date: 20161109
  Serious: Yes (Death, Life-Threatening, Hospitalization, Other)
  Sender: FDA-Public Use
  Company Number: US-ROCHE-782398

PATIENT
  Age: 65 Year
  Sex: Male
  Weight: 51.9 kg

DRUGS (2)
  1. BEVACIZUMAB [Suspect]
     Active Substance: BEVACIZUMAB
     Indication: CARCINOID TUMOUR
     Dosage: ON DAY 1, AND 15 DATE OF LAST ADMINISTRATION WAS 19 OCTOBER 2010
     Route: 042
  2. TEMSIROLIMUS [Suspect]
     Active Substance: TEMSIROLIMUS
     Indication: CARCINOID TUMOUR
     Dosage: DAY 1, 8, 15 AND 22, LAST DOSE ADMINISTERED ON 19 OCTOBER 2010, CYCLE 28
     Route: 042

REACTIONS (10)
  - Disseminated intravascular coagulation [Unknown]
  - Hypoxia [Unknown]
  - Haematuria [Unknown]
  - Haematoma [Unknown]
  - Lower gastrointestinal haemorrhage [Unknown]
  - Abdominal pain [Unknown]
  - Small intestinal obstruction [Unknown]
  - Gastrointestinal perforation [Fatal]
  - Anaemia [Unknown]
  - Hypokalaemia [Unknown]

NARRATIVE: CASE EVENT DATE: 20101025
